FAERS Safety Report 10589561 (Version 1)
Quarter: 2014Q4

REPORT INFORMATION
  Report Type: Spontaneous
  Country: JP (occurrence: None)
  Receive Date: 20141114
  Receipt Date: 20141114
  Transmission Date: 20150529
  Serious: Yes (Hospitalization)
  Sender: FDA-Public Use
  Company Number: VAL_03580_2014

PATIENT
  Age: 51 Year
  Sex: Male

DRUGS (1)
  1. CARBAMAZEPINE (CARBAMAZEPINE) [Suspect]
     Active Substance: CARBAMAZEPINE
     Indication: BIPOLAR I DISORDER
     Dates: start: 20080318, end: 20080428

REACTIONS (7)
  - Cytomegalovirus test positive [None]
  - Cytomegalovirus infection [None]
  - Human herpesvirus 6 infection [None]
  - Drug reaction with eosinophilia and systemic symptoms [None]
  - Human herpesvirus 7 infection [None]
  - Goitre [None]
  - Thyroiditis [None]

NARRATIVE: CASE EVENT DATE: 2008
